FAERS Safety Report 17369393 (Version 1)
Quarter: 2020Q1

REPORT INFORMATION
  Report Type: Spontaneous
  Country: US (occurrence: US)
  Receive Date: 20200121
  Receipt Date: 20200121
  Transmission Date: 20200409
  Serious: Yes (Hospitalization)
  Sender: FDA-Public Use
  Company Number: None

PATIENT
  Age: 16 Year
  Sex: Female
  Weight: 15.6 kg

DRUGS (5)
  1. ASPIRIN 81 MG [Concomitant]
     Active Substance: ASPIRIN
  2. LEVOTHYROXINE. [Concomitant]
     Active Substance: LEVOTHYROXINE
  3. NORETHINDOVIA [Concomitant]
  4. ATENOLOL. [Concomitant]
     Active Substance: ATENOLOL
  5. LONAFARNIB 100MG BID PO [Suspect]
     Active Substance: LONAFARNIB
     Indication: PROGERIA
     Dosage: 150 MG/M2
     Route: 048
     Dates: start: 20160801

REACTIONS (2)
  - Internal fixation of fracture [None]
  - Device breakage [None]

NARRATIVE: CASE EVENT DATE: 20191111
